FAERS Safety Report 4534225-1 (Version None)
Quarter: 2004Q4

REPORT INFORMATION
  Report Type: 
  Country: None (occurrence: None)
  Receive Date: 20041221
  Receipt Date: 20041221
  Transmission Date: 20050328
  Serious: Yes (Disabling)
  Sender: FDA-Public Use
  Company Number: None

PATIENT
  Age: 30 Year
  Sex: Male
  Weight: 77.1115 kg

DRUGS (3)
  1. CYMBALTA [Suspect]
     Indication: ANXIETY
     Dosage: 60MG  1 QD  ORAL
     Route: 048
     Dates: start: 20041019, end: 20041022
  2. CYMBALTA [Suspect]
     Indication: DEPRESSION
     Dosage: 60MG  1 QD  ORAL
     Route: 048
     Dates: start: 20041019, end: 20041022
  3. CYMBALTA [Suspect]
     Indication: FIBROMYALGIA
     Dosage: 60MG  1 QD  ORAL
     Route: 048
     Dates: start: 20041019, end: 20041022

REACTIONS (5)
  - DISORIENTATION [None]
  - FEELING ABNORMAL [None]
  - HEADACHE [None]
  - LOSS OF CONSCIOUSNESS [None]
  - NECK PAIN [None]
